FAERS Safety Report 4894841-4 (Version None)
Quarter: 2006Q1

REPORT INFORMATION
  Report Type: 
  Country: None (occurrence: None)
  Receive Date: 20060126
  Receipt Date: 20060126
  Transmission Date: 20060701
  Serious: Yes (Death, Hospitalization, Other)
  Sender: FDA-Public Use
  Company Number: None

PATIENT
  Age: 63 Year
  Sex: Female

DRUGS (9)
  1. TAMOXIFEN CITRATE [Suspect]
     Indication: BREAST CANCER
     Dosage: 20 MG/DAY PO
     Route: 048
     Dates: start: 20031029, end: 20060119
  2. ARIMIDEX [Suspect]
     Indication: BREAST CANCER
     Dosage: 1 MG/DAY PO
     Route: 048
     Dates: start: 20031029, end: 20060119
  3. NASAL SPRAY [Concomitant]
  4. LEVOTHYROXINE SODIUM [Concomitant]
  5. VIT D [Concomitant]
  6. ZYRTEC [Concomitant]
  7. VICODIN [Concomitant]
  8. TRAMADOL HCL [Concomitant]
  9. ARTHROTEC [Concomitant]

REACTIONS (5)
  - CAROTID ARTERY ANEURYSM [None]
  - COMPUTERISED TOMOGRAM ABNORMAL [None]
  - HEADACHE [None]
  - SUBARACHNOID HAEMORRHAGE [None]
  - SYNCOPE [None]
